FAERS Safety Report 4825798-X (Version None)
Quarter: 2005Q4

REPORT INFORMATION
  Report Type: 
  Country: None (occurrence: None)
  Receive Date: 20051111
  Receipt Date: 20051031
  Transmission Date: 20060501
  Serious: Yes (Hospitalization)
  Sender: FDA-Public Use
  Company Number: FR-GLAXOSMITHKLINE-B0399248A

PATIENT
  Age: 73 Year
  Sex: Male
  Weight: 76 kg

DRUGS (4)
  1. AVANDIA [Suspect]
     Dosage: 1UNIT PER DAY
     Route: 048
     Dates: start: 20050113, end: 20050715
  2. GLUCOPHAGE [Concomitant]
     Route: 048
     Dates: start: 19870101
  3. AMAREL [Concomitant]
     Route: 048
     Dates: start: 20040701
  4. XATRAL [Concomitant]
     Route: 048
     Dates: start: 19980101

REACTIONS (2)
  - HEPATITIS [None]
  - JAUNDICE [None]
